FAERS Safety Report 6676290-1 (Version None)
Quarter: 2010Q2

REPORT INFORMATION
  Report Type: 
  Country: None (occurrence: None)
  Receive Date: 20100412
  Receipt Date: 20100331
  Transmission Date: 20101027
  Serious: Yes (Death)
  Sender: FDA-Public Use
  Company Number: CN-PFIZER INC-2010041583

PATIENT
  Age: 48 Year
  Sex: Female

DRUGS (3)
  1. CEFOPERAZONE SODIUM, SULBACTAM SODIUM [Suspect]
     Indication: BRONCHITIS
     Dosage: UNK
     Route: 042
     Dates: start: 20080513, end: 20080513
  2. CEFOPERAZONE SODIUM [Suspect]
     Dosage: UNK
     Route: 042
     Dates: start: 20080501, end: 20080501
  3. CEFUROXIME SODIUM [Suspect]
     Indication: BRONCHITIS
     Dosage: UNK
     Route: 042
     Dates: start: 20080501, end: 20080501

REACTIONS (2)
  - ANAPHYLACTIC SHOCK [None]
  - DRUG INEFFECTIVE [None]
